FAERS Safety Report 8364047-5 (Version None)
Quarter: 2012Q2

REPORT INFORMATION
  Report Type: 
  Country: None (occurrence: None)
  Receive Date: 20120516
  Receipt Date: 20120511
  Transmission Date: 20120825
  Serious: Yes (Hospitalization, Other)
  Sender: FDA-Public Use
  Company Number: US-ASTRAZENECA-2011SE32254

PATIENT
  Age: 54 Year
  Sex: Female

DRUGS (20)
  1. NEXIUM [Suspect]
     Indication: DYSPEPSIA
     Route: 048
     Dates: start: 20090605
  2. NEXIUM [Suspect]
     Route: 048
     Dates: start: 20090801, end: 20110401
  3. TOPROL-XL [Concomitant]
     Indication: HYPERTENSION
  4. NEXIUM [Suspect]
     Route: 048
     Dates: start: 20100507
  5. ASPIRIN [Concomitant]
  6. MAXZIDE [Concomitant]
     Dates: start: 20090605
  7. CELEBREX [Concomitant]
     Dates: start: 20090605
  8. PEPCID [Concomitant]
  9. HYDROCODONE BITARTRATE [Concomitant]
     Dates: start: 20101026
  10. NEXIUM [Suspect]
     Route: 048
     Dates: start: 20090801, end: 20110401
  11. PROZAC [Concomitant]
     Indication: EMOTIONAL DISTRESS
     Dates: start: 20090506
  12. ALPRAZOLAM [Concomitant]
     Route: 048
     Dates: start: 20100317
  13. ROLAIDS [Concomitant]
  14. MICAPEX [Concomitant]
     Dates: start: 20101026
  15. GARLIC [Concomitant]
     Dosage: ONE A DAY
     Dates: start: 20090506
  16. NEXIUM [Suspect]
     Route: 048
     Dates: start: 20100507
  17. BONIVA [Concomitant]
     Indication: OSTEOPOROSIS
     Dates: start: 20101026
  18. LOVAZA [Concomitant]
     Dates: start: 20101026
  19. NEXIUM [Suspect]
     Indication: GASTROOESOPHAGEAL REFLUX DISEASE
     Route: 048
     Dates: start: 20090605
  20. CLONAZEPAM [Concomitant]
     Indication: EMOTIONAL DISTRESS

REACTIONS (8)
  - OSTEOARTHRITIS [None]
  - NECK PAIN [None]
  - OSTEOPOROSIS [None]
  - BONE DISORDER [None]
  - BONE FORMATION DECREASED [None]
  - INTERVERTEBRAL DISC PROTRUSION [None]
  - HAND FRACTURE [None]
  - ARTHRITIS [None]
